FAERS Safety Report 8609978-3 (Version None)
Quarter: 2012Q3

REPORT INFORMATION
  Report Type: 
  Country: None (occurrence: None)
  Receive Date: 20120822
  Receipt Date: 20120808
  Transmission Date: 20120928
  Serious: Yes (Congenital Anomaly)
  Sender: FDA-Public Use
  Company Number: GB-MYLANLABS-2012S1001282

PATIENT
  Sex: Male

DRUGS (3)
  1. FOLIC ACID [Concomitant]
     Indication: PRODUCT USED FOR UNKNOWN INDICATION
     Route: 064
  2. AZATHIOPRINE SODIUM [Suspect]
     Route: 064
  3. ADALIMUMAB [Suspect]
     Route: 064

REACTIONS (2)
  - MATERNAL EXPOSURE DURING PREGNANCY [None]
  - DEAFNESS NEUROSENSORY [None]
